FAERS Safety Report 7888568-4 (Version None)
Quarter: 2011Q4

REPORT INFORMATION
  Report Type: 
  Country: None (occurrence: None)
  Receive Date: 20111103
  Receipt Date: 20111101
  Transmission Date: 20120403
  Serious: No
  Sender: FDA-Public Use
  Company Number: US-PFIZER INC-2011267734

PATIENT
  Sex: Female
  Weight: 52.154 kg

DRUGS (12)
  1. CRESTOR [Concomitant]
     Indication: BLOOD CHOLESTEROL INCREASED
     Dosage: 20 MG, UNK
  2. ASPIRIN [Concomitant]
     Dosage: 81 MG, UNK
  3. CHANTIX [Suspect]
     Indication: SMOKING CESSATION THERAPY
     Dosage: 0.5 MG, 1X/DAY
     Route: 048
     Dates: start: 20111027, end: 20111001
  4. CHANTIX [Suspect]
     Dosage: 0.5 MG, 2X/DAY
     Route: 048
     Dates: start: 20111001, end: 20111030
  5. ATENOLOL [Concomitant]
     Indication: TACHYCARDIA
     Dosage: 100 MG, UNK
  6. PLAVIX [Concomitant]
     Indication: ANTICOAGULANT THERAPY
     Dosage: 75 MG, UNK
  7. FISH OIL [Concomitant]
     Dosage: 1000 MG, UNK
  8. LOSARTAN [Concomitant]
     Indication: HYPERTENSION
     Dosage: 100 MG, UNK
  9. ZANTAC [Concomitant]
     Indication: DYSPEPSIA
     Dosage: 150 MG, UNK
  10. FOLIC ACID [Concomitant]
     Indication: FOLATE DEFICIENCY
     Dosage: 400 MCG, UNK
  11. LOVAZA [Concomitant]
     Dosage: UNK
  12. MULTI-VITAMINS [Concomitant]
     Dosage: UNK

REACTIONS (4)
  - OEDEMA MOUTH [None]
  - SCAB [None]
  - STOMATITIS [None]
  - ORAL PAIN [None]
